FAERS Safety Report 18219987 (Version 1)
Quarter: 2020Q3

REPORT INFORMATION
  Report Type: Report from Study
  Country: GB (occurrence: GB)
  Receive Date: 20200901
  Receipt Date: 20200901
  Transmission Date: 20201103
  Serious: Yes (Other)
  Sender: FDA-Public Use
  Company Number: GB-SAMSUNG BIOEPIS-SB-2020-25719

PATIENT
  Age: 78 Year
  Sex: Male

DRUGS (3)
  1. IMRALDI [Suspect]
     Active Substance: ADALIMUMAB
     Indication: RHEUMATOID ARTHRITIS
     Route: 058
     Dates: start: 20200611
  2. METHOTREXATE. [Suspect]
     Active Substance: METHOTREXATE
     Indication: PRODUCT USED FOR UNKNOWN INDICATION
     Dosage: UNKNOWN
     Route: 065
  3. IMRALDI [Suspect]
     Active Substance: ADALIMUMAB
     Route: 058
     Dates: start: 20200611

REACTIONS (4)
  - Infection [Unknown]
  - Immunosuppression [Unknown]
  - Tongue cancer metastatic [Unknown]
  - Rheumatoid arthritis [Unknown]
